FAERS Safety Report 16100000 (Version 1)
Quarter: 2019Q1

REPORT INFORMATION
  Report Type: Spontaneous
  Country: BG (occurrence: BG)
  Receive Date: 20190321
  Receipt Date: 20190321
  Transmission Date: 20190418
  Serious: Yes (Other)
  Sender: FDA-Public Use
  Company Number: BG-MYLANLABS-2019M1025137

PATIENT
  Age: 68 Year
  Sex: Female

DRUGS (3)
  1. ESOPRAGEN [Suspect]
     Active Substance: ESOMEPRAZOLE
     Indication: GASTROOESOPHAGEAL REFLUX DISEASE
     Dosage: 20 MILLIGRAM, BID
     Route: 048
     Dates: start: 20190304, end: 2019
  2. ESOPRAGEN [Suspect]
     Active Substance: ESOMEPRAZOLE
     Indication: GASTRITIS
  3. IBEROGAST [Concomitant]
     Active Substance: HERBALS
     Dosage: UNK
     Route: 048

REACTIONS (5)
  - Hypoaesthesia [Recovered/Resolved]
  - Rash [Recovered/Resolved]
  - Genital haemorrhage [Recovered/Resolved]
  - Gingival bleeding [Recovered/Resolved]
  - Off label use [Unknown]

NARRATIVE: CASE EVENT DATE: 2019
